FAERS Safety Report 19650824 (Version 1)
Quarter: 2021Q3

REPORT INFORMATION
  Report Type: Report from Study
  Country: US (occurrence: US)
  Receive Date: 20210803
  Receipt Date: 20210803
  Transmission Date: 20211014
  Serious: Yes (Other)
  Sender: FDA-Public Use
  Company Number: US-UCBSA-2021005372

PATIENT
  Age: 75 Year
  Sex: Female

DRUGS (1)
  1. ROTIGOTINE [Suspect]
     Active Substance: ROTIGOTINE
     Indication: RESTLESS LEGS SYNDROME
     Dosage: 8 MILLIGRAM, ONCE DAILY (QD)

REACTIONS (9)
  - Overdose [Unknown]
  - Tremor [Not Recovered/Not Resolved]
  - Product dose omission issue [Unknown]
  - Fall [Not Recovered/Not Resolved]
  - Therapy interrupted [Unknown]
  - Skin laceration [Not Recovered/Not Resolved]
  - Drooling [Not Recovered/Not Resolved]
  - General physical health deterioration [Not Recovered/Not Resolved]
  - Product availability issue [Unknown]

NARRATIVE: CASE EVENT DATE: 202103
